FAERS Safety Report 8367299-0 (Version None)
Quarter: 2012Q2

REPORT INFORMATION
  Report Type: 
  Country: None (occurrence: None)
  Receive Date: 20120517
  Receipt Date: 20120508
  Transmission Date: 20120825
  Serious: No
  Sender: FDA-Public Use
  Company Number: US-ASTRAZENECA-2012SE18600

PATIENT
  Age: 47 Year
  Sex: Female

DRUGS (1)
  1. SYMBICORT [Suspect]
     Dosage: UNKNOWN FREQUENCY
     Route: 055

REACTIONS (3)
  - INTENTIONAL DRUG MISUSE [None]
  - ASTHMA [None]
  - DYSPNOEA [None]
